FAERS Safety Report 8974215 (Version 1)
Quarter: 2012Q4

REPORT INFORMATION
  Report Type: Spontaneous
  Country: GB (occurrence: None)
  Receive Date: 20121214
  Receipt Date: 20121214
  Transmission Date: 20130627
  Serious: Yes (Death)
  Sender: FDA-Public Use
  Company Number: 1517304

PATIENT
  Age: 75 Year
  Sex: Male
  Weight: 29.08 kg

DRUGS (33)
  1. MEROPENEM [Suspect]
     Indication: ESCHERICHIA URINARY TRACT INFECTION
     Route: 042
     Dates: start: 20121021, end: 20121025
  2. SIMVASTATIN [Suspect]
     Indication: HYPERCHOLESTERAEMIA
     Dosage: once daily in the morning
     Route: 048
     Dates: start: 20110704, end: 20121022
  3. COLCHICINE [Concomitant]
  4. SEVELAMER [Concomitant]
  5. ASCORBIC ACID [Concomitant]
  6. PICOLAX [Concomitant]
  7. LACTULOSE [Concomitant]
  8. DOCUSATE SODIUM [Concomitant]
  9. DARBEPOETIN ALFA [Concomitant]
  10. METOCLOPRAMIDE [Concomitant]
  11. AMLODIPINE [Concomitant]
  12. RANITIDINE [Concomitant]
  13. HYDROCORTISONE [Concomitant]
  14. CYCLIZINE [Concomitant]
  15. DALTEPARIN SODIUM [Concomitant]
  16. PARACETAMOL [Concomitant]
  17. ZOPICLONE [Concomitant]
  18. HYOSCINE BUTYLBROMIDE [Concomitant]
  19. SALBUTAMOL [Concomitant]
  20. MOVICOL   /01625101/) [Concomitant]
  21. FOLIC ACID [Concomitant]
  22. (OMACOR   /01403701/) [Concomitant]
  23. (SENNA   /00142201/) [Concomitant]
  24. VITAMIN B COMPLEX [Concomitant]
  25. FINASTERIDE [Concomitant]
  26. FUROSEMIDE [Concomitant]
  27. NICORANDIL [Concomitant]
  28. (HUMULIN   /00806401/) [Concomitant]
  29. NEFOPAM [Concomitant]
  30. TRIMETHOPRIM [Concomitant]
  31. IPRATROPIUM BROMIDE [Concomitant]
  32. DOXAZOSIN [Concomitant]
  33. CLARITHROMYCIN [Concomitant]

REACTIONS (3)
  - Myositis [None]
  - Myopathy [None]
  - Drug interaction [None]
